FAERS Safety Report 10098493 (Version 2)
Quarter: 2014Q2

REPORT INFORMATION
  Report Type: Spontaneous
  Country: CN (occurrence: CN)
  Receive Date: 20140423
  Receipt Date: 20140625
  Transmission Date: 20141212
  Serious: Yes (Hospitalization)
  Sender: FDA-Public Use
  Company Number: CN-ASTRAZENECA-2014SE26447

PATIENT
  Age: 71 Year
  Sex: Female

DRUGS (7)
  1. PLENDIL [Suspect]
     Indication: HYPERTENSION
     Route: 048
     Dates: start: 20120906, end: 20120921
  2. PLENDIL [Suspect]
     Indication: HYPERTENSION
     Route: 048
     Dates: start: 20121212, end: 20140415
  3. PLENDIL [Suspect]
     Indication: HYPERTENSION
     Route: 048
     Dates: start: 20140416, end: 20140416
  4. IRBESARTAN [Concomitant]
     Route: 048
     Dates: start: 20121212
  5. NIFEDIPINE [Concomitant]
     Route: 048
     Dates: start: 201209, end: 201302
  6. NIFEDIPINE [Concomitant]
     Route: 048
     Dates: start: 201209
  7. ZANGMISHUANGBAO [Concomitant]
     Route: 048
     Dates: start: 2013

REACTIONS (6)
  - Hypertension [Recovering/Resolving]
  - Dizziness [Recovered/Resolved]
  - Hypotension [Recovered/Resolved]
  - Gingival pain [Not Recovered/Not Resolved]
  - Oedema peripheral [Recovering/Resolving]
  - Gingival swelling [Unknown]
